FAERS Safety Report 10777715 (Version 1)
Quarter: 2015Q1

REPORT INFORMATION
  Report Type: Report from Study
  Country: AU (occurrence: AU)
  Receive Date: 20150209
  Receipt Date: 20150209
  Transmission Date: 20150721
  Serious: Yes (Other)
  Sender: FDA-Public Use
  Company Number: AU-BAXTER-2015BAX004230

PATIENT

DRUGS (2)
  1. BAXTER SEVOFLURANE 250ML INHALATION LIQUID BOTTLE - 106647 [Suspect]
     Active Substance: SEVOFLURANE
     Indication: ANAESTHESIA
     Route: 055
  2. NITROUS OXIDE. [Suspect]
     Active Substance: NITROUS OXIDE
     Indication: ANAESTHESIA
     Route: 065

REACTIONS (2)
  - Agitation postoperative [Unknown]
  - Wound [Unknown]
